FAERS Safety Report 9051107 (Version 1)
Quarter: 2013Q1

REPORT INFORMATION
  Report Type: Spontaneous
  Country: FR (occurrence: FR)
  Receive Date: 20130206
  Receipt Date: 20130206
  Transmission Date: 20140127
  Serious: Yes (Other)
  Sender: FDA-Public Use
  Company Number: FR-ABBOTT-13P-056-1046035-00

PATIENT
  Age: 39 Year
  Sex: Female

DRUGS (2)
  1. DEPAKINE [Suspect]
     Indication: EPILEPSY
     Dosage: TWICE A DAY
     Route: 048
     Dates: end: 20120417
  2. KEPPRA [Suspect]
     Indication: EPILEPSY
     Dosage: TWICE A DAY
     Route: 048
     Dates: start: 20120418

REACTIONS (2)
  - Abortion spontaneous [Unknown]
  - Epilepsy [Unknown]
